FAERS Safety Report 6915547-3 (Version None)
Quarter: 2010Q3

REPORT INFORMATION
  Report Type: 
  Country: None (occurrence: None)
  Receive Date: 20100804
  Receipt Date: 20100721
  Transmission Date: 20110219
  Serious: Yes (Death, Hospitalization)
  Sender: FDA-Public Use
  Company Number: 2010AP001514

PATIENT
  Age: 97 Year
  Sex: Female

DRUGS (14)
  1. CITALOPRAM HYDROBROMIDE [Suspect]
     Indication: DEPRESSION
     Dosage: 10 MG;PO
     Route: 048
     Dates: start: 20100512, end: 20100517
  2. COLECALCIFEROL (CEOLCALCIFEROL) [Concomitant]
  3. CALCIUM CARBONATE [Concomitant]
  4. ASPIRIN [Concomitant]
  5. ATORVASTATIN CALCIUM [Concomitant]
  6. CANDESARTAN CILEXETIL [Concomitant]
  7. CARVEDILOL [Concomitant]
  8. FUROSEMIDE [Concomitant]
  9. MACROGOL (MACROGOL) [Concomitant]
  10. POTASSIUM CHLORIDE [Concomitant]
  11. SODIUM BICARBONATE IN PLASTIC CONTAINER [Concomitant]
  12. SODIUM CHLORIDE 0.9% [Concomitant]
  13. OMEPRAZOLE [Concomitant]
  14. TRAZODONE HCL [Concomitant]

REACTIONS (2)
  - HYPONATRAEMIA [None]
  - MULTI-ORGAN FAILURE [None]
